FAERS Safety Report 4976140-5 (Version None)
Quarter: 2006Q2

REPORT INFORMATION
  Report Type: 
  Country: None (occurrence: None)
  Receive Date: 20060411
  Receipt Date: 20060329
  Transmission Date: 20061013
  Serious: Yes (Other)
  Sender: FDA-Public Use
  Company Number: US-2006-004877

PATIENT
  Age: 41 Year
  Sex: Female
  Weight: 83 kg

DRUGS (2)
  1. BETASERON [Suspect]
     Indication: SECONDARY PROGRESSIVE MULTIPLE SCLEROSIS
     Dosage: 4 MIU,  EVERY 2D, SUBCUTANEOUS
     Route: 058
     Dates: start: 20050831
  2. CLONAZEPAM [Concomitant]

REACTIONS (5)
  - CHEST PAIN [None]
  - DEAFNESS [None]
  - EAR PAIN [None]
  - KIDNEY INFECTION [None]
  - PYREXIA [None]
